FAERS Safety Report 18829215 (Version 3)
Quarter: 2022Q1

REPORT INFORMATION
  Report Type: Spontaneous
  Country: US (occurrence: US)
  Receive Date: 20210201
  Receipt Date: 20220201
  Transmission Date: 20220423
  Serious: No
  Sender: FDA-Public Use
  Company Number: US-ABBVIE-20K-163-3570054-00

PATIENT
  Sex: Female

DRUGS (1)
  1. HUMIRA [Suspect]
     Active Substance: ADALIMUMAB
     Indication: Psoriasis
     Route: 058

REACTIONS (6)
  - Skin laceration [Unknown]
  - Scratch [Unknown]
  - Rash [Not Recovered/Not Resolved]
  - Psoriasis [Unknown]
  - Gait disturbance [Unknown]
  - Self-consciousness [Unknown]
